FAERS Safety Report 9373085 (Version 1)
Quarter: 2013Q2

REPORT INFORMATION
  Report Type: Spontaneous
  Country: US (occurrence: US)
  Receive Date: 20130627
  Receipt Date: 20130627
  Transmission Date: 20140414
  Serious: Yes (Other)
  Sender: FDA-Public Use
  Company Number: US-PFIZER INC-2013186525

PATIENT
  Age: 87 Year
  Sex: 0

DRUGS (2)
  1. ZYVOX [Suspect]
     Indication: BACTERIAL INFECTION
     Dosage: UNK,  2X/DAY
  2. CIPRO [Suspect]
     Indication: BACTERIAL INFECTION
     Dosage: UNK, 2X/DAY

REACTIONS (2)
  - Renal impairment [Recovering/Resolving]
  - Platelet count decreased [Unknown]
